FAERS Safety Report 19136208 (Version 1)
Quarter: 2021Q2

REPORT INFORMATION
  Report Type: Spontaneous
  Country: JP (occurrence: JP)
  Receive Date: 20210414
  Receipt Date: 20210414
  Transmission Date: 20210717
  Serious: Yes (Other)
  Sender: FDA-Public Use
  Company Number: JP-PFIZER INC-2021371112

PATIENT

DRUGS (1)
  1. SOLU?MEDROL [Suspect]
     Active Substance: METHYLPREDNISOLONE SODIUM SUCCINATE
     Indication: INTERSTITIAL LUNG DISEASE
     Dosage: 1000 MG
     Route: 041

REACTIONS (5)
  - Urticaria [Unknown]
  - Drug eruption [Unknown]
  - Shock [Unknown]
  - Rash [Unknown]
  - Off label use [Unknown]
